FAERS Safety Report 20834857 (Version 1)
Quarter: 2022Q2

REPORT INFORMATION
  Report Type: Spontaneous
  Country: US (occurrence: US)
  Receive Date: 20220516
  Receipt Date: 20220516
  Transmission Date: 20220721
  Serious: No
  Sender: FDA-Public Use
  Company Number: US-PFIZER INC-202200591653

PATIENT
  Age: 57 Year
  Sex: Female

DRUGS (2)
  1. IBRANCE [Suspect]
     Active Substance: PALBOCICLIB
     Indication: Breast cancer
     Dosage: ONCE A DAY FOR 21 DAYS ON AND 7 DAYS OFF
     Dates: start: 20211214
  2. IBRANCE [Suspect]
     Active Substance: PALBOCICLIB
     Indication: Bone cancer

REACTIONS (2)
  - Tumour marker increased [Unknown]
  - Carbohydrate antigen 125 increased [Unknown]

NARRATIVE: CASE EVENT DATE: 20220301
